FAERS Safety Report 5841211-8 (Version None)
Quarter: 2008Q3

REPORT INFORMATION
  Report Type: 
  Country: None (occurrence: None)
  Receive Date: 20080812
  Receipt Date: 20080807
  Transmission Date: 20090109
  Serious: Yes (Hospitalization)
  Sender: FDA-Public Use
  Company Number: PL-JNJFOC-20080801313

PATIENT
  Sex: Female
  Weight: 65 kg

DRUGS (2)
  1. NORGESTIMATE AND ETHINYL ESTRADIOL [Suspect]
     Indication: CONTRACEPTION
     Route: 048
  2. BELISSA SUN [Concomitant]

REACTIONS (1)
  - PHOTOSENSITIVITY ALLERGIC REACTION [None]
